FAERS Safety Report 6765117-5 (Version None)
Quarter: 2010Q2

REPORT INFORMATION
  Report Type: 
  Country: None (occurrence: None)
  Receive Date: 20100609
  Receipt Date: 20100609
  Transmission Date: 20101027
  Serious: Yes (Other)
  Sender: FDA-Public Use
  Company Number: None

PATIENT
  Age: 81 Year
  Sex: Female
  Weight: 53.0709 kg

DRUGS (2)
  1. LEVOTHYROXINE SODIUM [Suspect]
     Indication: THYROIDECTOMY
     Dosage: 50 MCG ONCE PER DAY PO
     Route: 048
     Dates: start: 20070727, end: 20100603
  2. SYNTHROID [Suspect]

REACTIONS (2)
  - ASTHENIA [None]
  - PRODUCT SUBSTITUTION ISSUE [None]
